FAERS Safety Report 25346308 (Version 1)
Quarter: 2025Q2

REPORT INFORMATION
  Report Type: Other
  Country: US (occurrence: US)
  Receive Date: 20250522
  Receipt Date: 20250522
  Transmission Date: 20250716
  Serious: Yes (Hospitalization, Other)
  Sender: ALVOGEN
  Company Number: US-ALVOGEN-2025098003

PATIENT
  Sex: Female

DRUGS (2)
  1. FENTANYL [Suspect]
     Active Substance: FENTANYL
     Indication: Product used for unknown indication
  2. METHADONE [Suspect]
     Active Substance: METHADONE HYDROCHLORIDE
     Indication: Product used for unknown indication

REACTIONS (8)
  - Unresponsive to stimuli [Unknown]
  - Agonal respiration [Unknown]
  - Atrioventricular block second degree [Unknown]
  - Tachypnoea [Unknown]
  - Sinus bradycardia [Unknown]
  - Agitation [Unknown]
  - Overdose [Unknown]
  - Adulterated product [Unknown]
